FAERS Safety Report 8360763-X (Version None)
Quarter: 2012Q1

REPORT INFORMATION
  Report Type: 
  Country: None (occurrence: None)
  Receive Date: 20120323
  Receipt Date: 20110708
  Transmission Date: 20120608
  Serious: Yes (Hospitalization)
  Sender: FDA-Public Use
  Company Number: 163-21880-11012892

PATIENT
  Age: 61 Year
  Sex: Male
  Weight: 100.6985 kg

DRUGS (30)
  1. LASIX [Concomitant]
  2. MORPHINE [Concomitant]
  3. PEPCID [Concomitant]
  4. POTASSIUM CHLORIDE [Concomitant]
  5. UROXATRAL [Concomitant]
  6. ALLOPURINOL [Concomitant]
  7. ZOLOFT [Concomitant]
  8. CARISOPRODOL [Concomitant]
  9. NOVOLOG [Concomitant]
  10. REVLIMID [Suspect]
     Indication: MULTIPLE MYELOMA
     Dosage: 25 MG, DAILY FOR 14 DAYS, PO
     Route: 048
     Dates: start: 20110106
  11. DOXYCYCLINE [Concomitant]
  12. FERROUS SULFATE TAB [Concomitant]
  13. POTASSIUM CHLORIDE [Concomitant]
  14. EXFORGE [Concomitant]
  15. FOLIC ACID [Concomitant]
  16. HUMALOG [Concomitant]
  17. LORTAB [Concomitant]
  18. SOMA [Concomitant]
  19. SOTALOL HCL [Concomitant]
  20. SENOKOT [Concomitant]
  21. LEVEMIR [Concomitant]
  22. COMPAZINE [Concomitant]
  23. PHENERGAN HCL [Concomitant]
  24. IMDUR [Concomitant]
  25. LANOXIN [Concomitant]
  26. PROMETHAZINE [Concomitant]
  27. SIMVASTATIN [Concomitant]
  28. TOPROL-XL [Concomitant]
  29. DEXAMETHASONE [Concomitant]
  30. SENNA-MINT WAF [Concomitant]

REACTIONS (2)
  - CHEST PAIN [None]
  - ATRIAL FIBRILLATION [None]
